FAERS Safety Report 7094643-7 (Version None)
Quarter: 2010Q4

REPORT INFORMATION
  Report Type: 
  Country: None (occurrence: None)
  Receive Date: 20101110
  Receipt Date: 20101105
  Transmission Date: 20110411
  Serious: Yes (Other)
  Sender: FDA-Public Use
  Company Number: JP-PFIZER INC-2010126265

PATIENT
  Age: 69 Year
  Sex: Female

DRUGS (6)
  1. LYRICA [Suspect]
     Indication: POST HERPETIC NEURALGIA
     Dosage: 75 MG, 2X/DAY
     Route: 048
     Dates: start: 20100628, end: 20100901
  2. HORIZON [Concomitant]
     Dosage: UNK
     Route: 048
     Dates: start: 20100410
  3. TEGRETOL [Concomitant]
     Dosage: UNK
     Route: 048
     Dates: start: 20100410
  4. MAGNESIUM OXIDE [Concomitant]
     Indication: CONSTIPATION
     Dosage: UNK
     Route: 048
     Dates: start: 20100410
  5. CINAL [Concomitant]
     Indication: CHLOASMA
     Dosage: 1.0 G, 3X/DAY
     Route: 048
     Dates: start: 20080922
  6. TRANEXAMIC ACID [Concomitant]
     Indication: CHLOASMA
     Dosage: 250 MG, 3X/DAY
     Route: 048
     Dates: start: 20080922

REACTIONS (2)
  - BLISTER [None]
  - RASH PAPULAR [None]
